FAERS Safety Report 7438332-5 (Version None)
Quarter: 2011Q2

REPORT INFORMATION
  Report Type: 
  Country: None (occurrence: None)
  Receive Date: 20110418
  Receipt Date: 20110321
  Transmission Date: 20111010
  Serious: Yes (Hospitalization, Other)
  Sender: FDA-Public Use
  Company Number: 2011081827

PATIENT
  Age: 33 Year
  Sex: Female

DRUGS (1)
  1. FRAGMIN [Suspect]
     Indication: THROMBOSIS PROPHYLAXIS
     Dosage: 10000 IU, 1X/DAY
     Dates: start: 20101201, end: 20101224

REACTIONS (5)
  - DRUG EXPOSURE DURING PREGNANCY [None]
  - PULMONARY EMBOLISM [None]
  - UTERINE CONTRACTIONS DURING PREGNANCY [None]
  - UNDERDOSE [None]
  - STRESS [None]
